FAERS Safety Report 10692732 (Version 4)
Quarter: 2015Q1

REPORT INFORMATION
  Report Type: Report from Study
  Country: BE (occurrence: BE)
  Receive Date: 20150106
  Receipt Date: 20150206
  Transmission Date: 20150720
  Serious: Yes (Death, Hospitalization, Other)
  Sender: FDA-Public Use
  Company Number: BE-BAYER-2014-188681

PATIENT
  Age: 61 Year
  Sex: Male

DRUGS (2)
  1. STIVARGA [Suspect]
     Active Substance: REGORAFENIB
     Indication: COLON CANCER
     Dosage: 120 MG, QD
     Dates: start: 20141204
  2. STIVARGA [Suspect]
     Active Substance: REGORAFENIB
     Indication: COLON CANCER
     Dosage: 160 MG, DAILY
     Route: 048

REACTIONS (8)
  - Splenectomy [None]
  - Weight decreased [None]
  - Decreased appetite [None]
  - Peritonitis [None]
  - Intestinal obstruction [None]
  - Hypotension [None]
  - Death [Fatal]
  - Abdominal pain [None]

NARRATIVE: CASE EVENT DATE: 20141214
